FAERS Safety Report 6415954-1 (Version None)
Quarter: 2009Q4

REPORT INFORMATION
  Report Type: 
  Country: None (occurrence: None)
  Receive Date: 20091027
  Receipt Date: 20091020
  Transmission Date: 20100525
  Serious: Yes (Other)
  Sender: FDA-Public Use
  Company Number: B0597135A

PATIENT
  Sex: Male
  Weight: 51 kg

DRUGS (4)
  1. RELENZA [Suspect]
     Dosage: 10MG TWICE PER DAY
     Route: 055
     Dates: start: 20091006, end: 20091006
  2. HOKUNALIN [Concomitant]
     Indication: BRONCHIECTASIS
     Dosage: 2MG PER DAY
     Route: 062
     Dates: start: 20091006
  3. BISOLVON [Concomitant]
     Indication: PRODUCTIVE COUGH
     Dosage: 8MG PER DAY
     Route: 048
     Dates: start: 20091006
  4. RESPLEN [Concomitant]
     Indication: ANTITUSSIVE THERAPY
     Dosage: 40MG PER DAY
     Route: 048
     Dates: start: 20091006

REACTIONS (3)
  - ABNORMAL BEHAVIOUR [None]
  - RESTLESSNESS [None]
  - TREMOR [None]
